FAERS Safety Report 9524801 (Version 1)
Quarter: 2013Q1

REPORT INFORMATION
  Report Type: Spontaneous
  Country: US (occurrence: None)
  Receive Date: 20130314
  Receipt Date: 20130314
  Transmission Date: 20140127
  Serious: No
  Sender: FDA-Public Use
  Company Number: 1301USA003180

PATIENT
  Age: 62 Year
  Sex: Female

DRUGS (5)
  1. VICTRELIS (BOCEPREVIR) CAPSULE, 200MG [Suspect]
     Indication: CHRONIC HEPATITIS C
     Route: 048
     Dates: start: 20120927
  2. PEGASYS (PEGINTERFERON ALFA-2A) [Suspect]
     Route: 058
  3. RIBAVIRIN (RIBAVIRIN) CAPSULE, 200MG [Suspect]
     Route: 048
  4. PROCRIT (EPOETIN ALFA) [Concomitant]
  5. NEUPOGEN (FILGRASTIM) [Concomitant]

REACTIONS (1)
  - Joint swelling [None]
